FAERS Safety Report 14414863 (Version 1)
Quarter: 2018Q1

REPORT INFORMATION
  Report Type: Spontaneous
  Country: CO (occurrence: CO)
  Receive Date: 20180120
  Receipt Date: 20180120
  Transmission Date: 20180509
  Serious: Yes (Hospitalization, Other)
  Sender: FDA-Public Use
  Company Number: CO-BIOMARINAP-CO-2018-116812

PATIENT
  Age: 13 Year
  Sex: Male

DRUGS (1)
  1. NAGLAZYME [Suspect]
     Active Substance: GALSULFASE
     Indication: PRODUCT USED FOR UNKNOWN INDICATION
     Route: 065

REACTIONS (6)
  - Pulmonary oedema [Unknown]
  - Cyanosis [Unknown]
  - Pulmonary hypertension [Unknown]
  - Carbon dioxide increased [Unknown]
  - Oxygen saturation decreased [Unknown]
  - Cardiac dysfunction [Unknown]
